FAERS Safety Report 23478236 (Version 1)
Quarter: 2024Q1

REPORT INFORMATION
  Report Type: Spontaneous
  Country: US (occurrence: US)
  Receive Date: 20240204
  Receipt Date: 20240204
  Transmission Date: 20240409
  Serious: No
  Sender: FDA-Public Use
  Company Number: US-EXELIXIS-CABO-23069439

PATIENT
  Sex: Male

DRUGS (2)
  1. CABOMETYX [Suspect]
     Active Substance: CABOZANTINIB S-MALATE
     Indication: Thyroid neoplasm
     Dosage: 40 MG
  2. PEMBROLIZUMAB [Concomitant]
     Active Substance: PEMBROLIZUMAB
     Indication: Thyroid neoplasm
     Dosage: UNK

REACTIONS (3)
  - Pulmonary mass [Recovering/Resolving]
  - Hepatic mass [Recovering/Resolving]
  - Off label use [Unknown]
